FAERS Safety Report 7789169-9 (Version None)
Quarter: 2011Q3

REPORT INFORMATION
  Report Type: 
  Country: None (occurrence: None)
  Receive Date: 20110930
  Receipt Date: 20110923
  Transmission Date: 20111222
  Serious: Yes (Other)
  Sender: FDA-Public Use
  Company Number: GB-PFIZER INC-2011227876

PATIENT
  Age: 88 Year
  Sex: Female

DRUGS (12)
  1. METRONIDAZOLE [Suspect]
     Route: 042
  2. MORPHINE SULFATE [Suspect]
     Route: 058
  3. AMITRIPTYLINE [Concomitant]
     Dosage: UNK MG, UNK
     Route: 048
  4. CETIRIZINE [Concomitant]
     Dosage: UNK MG, UNK
     Route: 048
  5. PROPYLTHIOURACIL [Concomitant]
     Dosage: UNK MG, UNK
     Route: 048
  6. VANCOMYCIN HCL [Suspect]
     Route: 042
  7. METOCLOPRAMIDE [Suspect]
     Route: 058
  8. LIDOCAINE [Concomitant]
     Route: 048
  9. MACROGOL [Concomitant]
     Route: 048
  10. CIPROFLOXACIN HCL [Suspect]
     Route: 042
  11. SIMVASTATIN [Concomitant]
     Dosage: UNK MG, UNK
     Route: 048
  12. TROSPIUM CHLORIDE [Concomitant]
     Dosage: UNK MG, UNK
     Route: 048

REACTIONS (1)
  - FACE OEDEMA [None]
